FAERS Safety Report 6733343-7 (Version None)
Quarter: 2010Q2

REPORT INFORMATION
  Report Type: 
  Country: None (occurrence: None)
  Receive Date: 20100520
  Receipt Date: 20100512
  Transmission Date: 20101027
  Serious: Yes (Other)
  Sender: FDA-Public Use
  Company Number: DE-PFIZER INC-2010054036

PATIENT
  Age: 32 Year
  Sex: Female

DRUGS (3)
  1. ZELDOX [Suspect]
     Indication: THOUGHT BLOCKING
     Dosage: 40 MG MORNING / 60 MG EVENING
     Route: 048
     Dates: start: 20100202
  2. ZELDOX [Suspect]
     Indication: THINKING ABNORMAL
  3. NAPROXEN [Concomitant]
     Dosage: UNK

REACTIONS (3)
  - GINGIVAL ATROPHY [None]
  - JAW DISORDER [None]
  - LOOSE TOOTH [None]
